FAERS Safety Report 11090214 (Version 5)
Quarter: 2016Q4

REPORT INFORMATION
  Report Type: Spontaneous
  Country: US (occurrence: US)
  Receive Date: 20150505
  Receipt Date: 20161102
  Transmission Date: 20170206
  Serious: Yes (Hospitalization)
  Sender: FDA-Public Use
  Company Number: US-ACTELION-A-US2015-117164

PATIENT
  Age: 56 Year
  Sex: Female

DRUGS (3)
  1. REMODULIN [Concomitant]
     Active Substance: TREPROSTINIL
  2. SILDENAFIL. [Concomitant]
     Active Substance: SILDENAFIL
  3. TRACLEER [Suspect]
     Active Substance: BOSENTAN
     Indication: PULMONARY ARTERIAL HYPERTENSION
     Dosage: 125 MG, BID
     Route: 048
     Dates: start: 20130410

REACTIONS (12)
  - Drug hypersensitivity [Unknown]
  - Infusion site induration [Unknown]
  - Infusion site discharge [Unknown]
  - Infusion site swelling [Unknown]
  - Infusion site urticaria [Unknown]
  - Fatigue [Unknown]
  - Condition aggravated [Unknown]
  - Infusion site infection [Unknown]
  - Infusion site pain [Unknown]
  - Incisional drainage [Unknown]
  - Staphylococcal infection [Unknown]
  - Device related infection [Unknown]
